FAERS Safety Report 8775573 (Version 1)
Quarter: 2012Q4

REPORT INFORMATION
  Report Type: Report from Study
  Country: CN (occurrence: CN)
  Receive Date: 20120910
  Receipt Date: 20120910
  Transmission Date: 20130627
  Serious: Yes (Death, Life-Threatening, Hospitalization)
  Sender: FDA-Public Use
  Company Number: CN-BRISTOL-MYERS SQUIBB COMPANY-16917817

PATIENT
  Age: 53 Year
  Sex: Male
  Weight: 54 kg

DRUGS (24)
  1. CARBOPLATIN [Suspect]
     Indication: NON-SMALL CELL LUNG CANCER
     Dosage: recent dose 630mg; withdrawn on an unspecified date.
     Route: 042
     Dates: start: 20120323
  2. PACLITAXEL [Suspect]
     Indication: NON-SMALL CELL LUNG CANCER
     Dosage: Most recent on 23Mar12
     Route: 042
     Dates: start: 20120323
  3. BEVACIZUMAB [Suspect]
     Indication: NON-SMALL CELL LUNG CANCER
     Dosage: Most recent on 04May12; withdrawn on an unspecified date.
     Route: 042
     Dates: start: 20120323
  4. PLACEBO [Suspect]
     Indication: NON-SMALL CELL LUNG CANCER
     Dosage: Most recent on 04May12; withdrawn on an unspecified date.
     Dates: start: 20120323
  5. OMEPRAZOLE [Concomitant]
     Indication: VOMITING
     Dates: start: 20120322, end: 20120527
  6. DOMPERIDONE [Concomitant]
     Dates: start: 20120322, end: 20120527
  7. RAMOSETRON HCL [Concomitant]
     Indication: VOMITING
     Route: 042
     Dates: start: 20120504, end: 20120504
  8. LENTINAN [Concomitant]
     Indication: PROPHYLAXIS
     Dates: start: 20120504, end: 20120504
  9. FRUCTOSE [Concomitant]
     Indication: PROPHYLAXIS
     Route: 042
     Dates: start: 20120504, end: 20120504
  10. MAGNESIUM [Concomitant]
     Route: 042
     Dates: start: 20120504, end: 20120504
  11. THYMOSIN ALPHA-1 [Concomitant]
     Dates: start: 20120504, end: 20120527
  12. INDOMETHACIN [Concomitant]
     Indication: MUSCULOSKELETAL STIFFNESS
     Dates: start: 20120504, end: 20120527
  13. RECOMBINANT HUMAN ERYTHROPOIETIN [Concomitant]
     Indication: PLATELET COUNT DECREASED
     Route: 042
     Dates: start: 20120522, end: 20120522
  14. DICYNONE [Concomitant]
     Indication: CEREBRAL HAEMORRHAGE
     Dosage: 27May-27May12-1D
     Dates: start: 20120322, end: 20120522
  15. PREDNISOLONE [Concomitant]
     Indication: PROPHYLAXIS
     Dates: start: 20120522, end: 20120522
  16. OXYGEN [Concomitant]
     Indication: CEREBRAL HAEMORRHAGE
     Dates: start: 20120527, end: 20120527
  17. MANNITOL [Concomitant]
     Indication: CEREBRAL HAEMORRHAGE
     Dates: start: 20120527, end: 20120527
  18. DIPROPHYLLINE [Concomitant]
     Indication: CEREBRAL HAEMORRHAGE
     Dates: start: 20120527, end: 20120527
  19. LIDOCAINE [Concomitant]
     Indication: CEREBRAL HAEMORRHAGE
     Dates: start: 20120527, end: 20120527
  20. ATROPINE [Concomitant]
     Indication: CEREBRAL HAEMORRHAGE
     Dates: start: 20120527, end: 20120527
  21. ADRENALINE [Concomitant]
     Indication: CEREBRAL HAEMORRHAGE
     Dates: start: 20120527, end: 20120527
  22. LOBELINE [Concomitant]
     Indication: CEREBRAL HAEMORRHAGE
     Dates: start: 20120527, end: 20120527
  23. NIKETHAMIDE [Concomitant]
     Indication: CEREBRAL HAEMORRHAGE
     Dates: start: 20120527, end: 20120527
  24. DEXAMETHASONE [Concomitant]
     Indication: CEREBRAL HAEMORRHAGE
     Dates: start: 20120527, end: 20120527

REACTIONS (2)
  - Cerebral haemorrhage [Fatal]
  - Thrombocytopenia [Fatal]
